FAERS Safety Report 20903828 (Version 1)
Quarter: 2022Q2

REPORT INFORMATION
  Report Type: Report from Study
  Country: CN (occurrence: None)
  Receive Date: 20220602
  Receipt Date: 20220602
  Transmission Date: 20220721
  Serious: Yes (Death)
  Sender: FDA-Public Use
  Company Number: CN-ROCHE-3108616

PATIENT
  Age: 65 Year
  Sex: Male
  Weight: 63.6 kg

DRUGS (11)
  1. BEVACIZUMAB [Suspect]
     Active Substance: BEVACIZUMAB
     Indication: Non-small cell lung cancer
     Dosage: 100 MG (4 ML)/VIAL
     Route: 041
     Dates: start: 20220303, end: 20220303
  2. BEVACIZUMAB [Suspect]
     Active Substance: BEVACIZUMAB
     Dosage: 100 MG (4 ML)/VIAL
     Route: 041
     Dates: start: 20220325, end: 20220325
  3. BEVACIZUMAB [Suspect]
     Active Substance: BEVACIZUMAB
     Dosage: 100 MG (4 ML)/VIAL
     Route: 041
     Dates: start: 20220509, end: 20220509
  4. PACLITAXEL [Suspect]
     Active Substance: PACLITAXEL
     Indication: Non-small cell lung cancer
     Dosage: 5 ML: 30 MG
     Route: 041
     Dates: start: 20220210, end: 20220210
  5. PACLITAXEL [Suspect]
     Active Substance: PACLITAXEL
     Dosage: 5 ML: 30 MG
     Route: 041
     Dates: start: 20220303, end: 20220303
  6. PACLITAXEL [Suspect]
     Active Substance: PACLITAXEL
     Dosage: 5 ML: 30 MG
     Route: 041
     Dates: start: 20220325, end: 20220325
  7. PACLITAXEL [Suspect]
     Active Substance: PACLITAXEL
     Dosage: 5 ML: 30 MG
     Route: 041
     Dates: start: 20220509, end: 20220509
  8. CARBOPLATIN [Suspect]
     Active Substance: CARBOPLATIN
     Indication: Non-small cell lung cancer
     Dosage: 5 ML: 30 MG
     Route: 041
     Dates: start: 20220210, end: 20220210
  9. CARBOPLATIN [Suspect]
     Active Substance: CARBOPLATIN
     Dosage: 5 ML: 30 MG
     Route: 041
     Dates: start: 20220303, end: 20220303
  10. CARBOPLATIN [Suspect]
     Active Substance: CARBOPLATIN
     Dosage: 5 ML: 30 MG
     Route: 041
     Dates: start: 20220325, end: 20220325
  11. CARBOPLATIN [Suspect]
     Active Substance: CARBOPLATIN
     Dosage: 5 ML: 30 MG
     Route: 041
     Dates: start: 20220509, end: 20220509

REACTIONS (1)
  - Death [Fatal]

NARRATIVE: CASE EVENT DATE: 20220514
